FAERS Safety Report 7031560-2 (Version None)
Quarter: 2010Q4

REPORT INFORMATION
  Report Type: 
  Country: None (occurrence: None)
  Receive Date: 20101006
  Receipt Date: 20101006
  Transmission Date: 20110411
  Serious: Yes (Other)
  Sender: FDA-Public Use
  Company Number: None

PATIENT
  Age: 52 Year
  Sex: Male
  Weight: 56.6996 kg

DRUGS (1)
  1. TARGRETIN [Suspect]
     Indication: T-CELL LYMPHOMA
     Dosage: 5 CAPSULES DAILY PO
     Route: 048
     Dates: start: 19981001, end: 20100930

REACTIONS (3)
  - DERMATITIS CONTACT [None]
  - DRY SKIN [None]
  - SKIN EXFOLIATION [None]
